FAERS Safety Report 10151584 (Version 2)
Quarter: 2014Q2

REPORT INFORMATION
  Report Type: Spontaneous
  Country: ES (occurrence: ES)
  Receive Date: 20140505
  Receipt Date: 20140505
  Transmission Date: 20141212
  Serious: Yes (Other)
  Sender: FDA-Public Use
  Company Number: ES-AMGEN INC.-ESPSP2014027874

PATIENT
  Age: 53 Year
  Sex: Male

DRUGS (2)
  1. ENBREL [Suspect]
     Indication: PSORIASIS
     Dosage: 50 MG, WEEKLY (ON TUESDAYS)
     Route: 065
     Dates: start: 20140318
  2. ROYAL JELLY [Concomitant]
     Indication: IMMUNISATION
     Dosage: 1 / 24H

REACTIONS (7)
  - Hypoaesthesia [Recovered/Resolved]
  - Feeling abnormal [Recovered/Resolved]
  - Inflammation [Unknown]
  - Cellulitis [Unknown]
  - Injection site reaction [Unknown]
  - Injection site pain [Unknown]
  - Injection site inflammation [Unknown]
